FAERS Safety Report 8557417-3 (Version None)
Quarter: 2012Q3

REPORT INFORMATION
  Report Type: 
  Country: None (occurrence: None)
  Receive Date: 20120801
  Receipt Date: 20120725
  Transmission Date: 20120928
  Serious: Yes (Other)
  Sender: FDA-Public Use
  Company Number: US-ROCHE-1061223

PATIENT
  Sex: Male
  Weight: 63.56 kg

DRUGS (4)
  1. ACCUTANE [Suspect]
     Dates: start: 19970201, end: 19980220
  2. PREDNISONE [Concomitant]
  3. ACCUTANE [Suspect]
     Indication: ACNE
     Dates: start: 19861029, end: 19870401
  4. ACCUTANE [Suspect]
     Dates: start: 19881024

REACTIONS (9)
  - ANAL ABSCESS [None]
  - CROHN'S DISEASE [None]
  - ALOPECIA [None]
  - OSTEOPENIA [None]
  - INFLAMMATORY BOWEL DISEASE [None]
  - IRRITABLE BOWEL SYNDROME [None]
  - COLITIS ULCERATIVE [None]
  - ERYTHEMA [None]
  - LIVER FUNCTION TEST ABNORMAL [None]
